FAERS Safety Report 20794240 (Version 1)
Quarter: 2022Q2

REPORT INFORMATION
  Report Type: 
  Country: IL (occurrence: IL)
  Receive Date: 20220506
  Receipt Date: 20220506
  Transmission Date: 20220720
  Serious: Yes (Hospitalization)
  Sender: FDA-Public Use
  Company Number: 211112-001713

PATIENT
  Age: 12 Year
  Sex: Male

DRUGS (1)
  1. ODEVIXIBAT [Suspect]
     Active Substance: ODEVIXIBAT
     Indication: Progressive familial intrahepatic cholestasis
     Dosage: UG/KG
     Route: 048

REACTIONS (1)
  - Diarrhoea [Recovered/Resolved]
